FAERS Safety Report 22302110 (Version 2)
Quarter: 2023Q2

REPORT INFORMATION
  Report Type: Report from Study
  Country: US (occurrence: US)
  Receive Date: 20230510
  Receipt Date: 20230612
  Transmission Date: 20230721
  Serious: Yes (Hospitalization, Other)
  Sender: FDA-Public Use
  Company Number: US-ABBVIE-4760603

PATIENT
  Sex: Male

DRUGS (2)
  1. VENCLEXTA [Suspect]
     Active Substance: VENETOCLAX
     Indication: Acute myeloid leukaemia recurrent
     Dosage: FREQUENCY TEXT: EVERY 24 HOURS?FREQUENCY: TAKE ONE 50MG TABLET WITH TWO 100MG TABLETS (TOTAL 250M...
     Route: 048
  2. VENCLEXTA [Suspect]
     Active Substance: VENETOCLAX
     Indication: Acute myeloid leukaemia recurrent
     Dosage: FREQUENCY TEXT: EVERY 24 HOURS?TAKE ONE 50MG TABLET WITH TWO 100 MG TABLETS (TOTAL 250MG) BY MOUT...
     Route: 048

REACTIONS (1)
  - Bone marrow transplant [Unknown]

NARRATIVE: CASE EVENT DATE: 20230101
